FAERS Safety Report 19414152 (Version 2)
Quarter: 2021Q3

REPORT INFORMATION
  Report Type: Spontaneous
  Country: GB (occurrence: GB)
  Receive Date: 20210615
  Receipt Date: 20210705
  Transmission Date: 20211014
  Serious: Yes (Other)
  Sender: FDA-Public Use
  Company Number: GB-OCTA-HAPL02521GB

PATIENT
  Age: 65 Year
  Sex: Female

DRUGS (3)
  1. ATENOLOL. [Concomitant]
     Active Substance: ATENOLOL
     Indication: HYPERTENSION
  2. PREDNISOLONE. [Concomitant]
     Active Substance: PREDNISOLONE
     Indication: PRODUCT USED FOR UNKNOWN INDICATION
  3. ASTRAZENECA COVID?19 VACCINE [Suspect]
     Active Substance: AZD-1222
     Indication: PRODUCT USED FOR UNKNOWN INDICATION
     Dosage: DOSE 1 (81 D LATENCY TO ADR)  AND 2 (11 D LATENCY)
     Dates: start: 20210225, end: 20210506

REACTIONS (8)
  - Contusion [Recovered/Resolved]
  - Petechiae [Recovered/Resolved]
  - Thrombosis [Recovered/Resolved]
  - Gastric ulcer [Recovered/Resolved]
  - Haemorrhage [Recovered/Resolved]
  - Immune thrombocytopenia [Recovering/Resolving]
  - Gingival bleeding [Recovered/Resolved]
  - Thrombocytopenia [Unknown]

NARRATIVE: CASE EVENT DATE: 20210517
